FAERS Safety Report 19407184 (Version 7)
Quarter: 2022Q1

REPORT INFORMATION
  Report Type: Report from Study
  Country: PL (occurrence: PL)
  Receive Date: 20210611
  Receipt Date: 20220221
  Transmission Date: 20220424
  Serious: Yes (Other)
  Sender: FDA-Public Use
  Company Number: PL-AMGEN-POLNI2021001107

PATIENT
  Age: 54 Year
  Sex: Male
  Weight: 76 kg

DRUGS (5)
  1. PANITUMUMAB [Suspect]
     Active Substance: PANITUMUMAB
     Indication: Colorectal cancer metastatic
     Dosage: 500 MILLIGRAM
     Route: 042
     Dates: start: 20191210
  2. ATOSSA [ONDANSETRON] [Concomitant]
     Dosage: 8 MILLIGRAM
     Route: 048
     Dates: start: 20191210, end: 20201217
  3. LEUCOVORIN [Concomitant]
     Active Substance: LEUCOVORIN
     Indication: Colorectal cancer metastatic
     Dosage: UNK
     Dates: start: 20200305, end: 20201119
  4. FLUOROURACIL [Concomitant]
     Active Substance: FLUOROURACIL
     Indication: Colorectal cancer metastatic
     Dosage: UNK
     Dates: start: 20200305, end: 20201119
  5. OXALIPLATIN [Concomitant]
     Active Substance: OXALIPLATIN
     Indication: Colorectal cancer metastatic
     Dosage: UNK
     Dates: start: 20200305, end: 20200618

REACTIONS (6)
  - Neuropathy peripheral [Recovered/Resolved]
  - Skin lesion [Recovered/Resolved]
  - Asthenia [Recovered/Resolved]
  - Paronychia [Recovered/Resolved]
  - Neoplasm progression [Recovered/Resolved]
  - Diarrhoea [Recovered/Resolved]

NARRATIVE: CASE EVENT DATE: 20200220
